FAERS Safety Report 10457952 (Version 2)
Quarter: 2014Q4

REPORT INFORMATION
  Report Type: Report from Study
  Country: US (occurrence: US)
  Receive Date: 20140916
  Receipt Date: 20141013
  Transmission Date: 20150528
  Serious: Yes (Hospitalization)
  Sender: FDA-Public Use
  Company Number: US-EXELIXIS-CABO-14004722

PATIENT
  Age: 62 Year
  Sex: Male

DRUGS (7)
  1. CABOZANTINIB [Suspect]
     Active Substance: CABOZANTINIB
     Dosage: 20 MG, QD
     Route: 048
     Dates: start: 20140825
  2. CABOZANTINIB [Suspect]
     Active Substance: CABOZANTINIB
     Indication: PROSTATE CANCER
     Dosage: 60 MG, QD
     Route: 048
     Dates: end: 20140817
  3. SIMVASTATIN. [Concomitant]
     Active Substance: SIMVASTATIN
  4. RAMIPRIL. [Concomitant]
     Active Substance: RAMIPRIL
  5. XGEVA [Concomitant]
     Active Substance: DENOSUMAB
  6. LUPRON [Concomitant]
     Active Substance: LEUPROLIDE ACETATE
  7. METOPROLOL [Concomitant]
     Active Substance: METOPROLOL

REACTIONS (6)
  - Off label use [Unknown]
  - Gait disturbance [Recovered/Resolved]
  - Pain [Recovered/Resolved]
  - Myalgia [Recovered/Resolved]
  - Arthralgia [Recovered/Resolved]
  - Asthenia [Recovered/Resolved]

NARRATIVE: CASE EVENT DATE: 20140608
